FAERS Safety Report 9189598 (Version 3)
Quarter: 2013Q2

REPORT INFORMATION
  Report Type: Spontaneous
  Country: FR (occurrence: FR)
  Receive Date: 20130326
  Receipt Date: 20130429
  Transmission Date: 20140414
  Serious: Yes (Other)
  Sender: FDA-Public Use
  Company Number: FR-JNJFOC-20130312290

PATIENT
  Age: 48 Year
  Sex: Female
  Weight: 57 kg

DRUGS (3)
  1. REMICADE [Suspect]
     Indication: SAPHO SYNDROME
     Dosage: 7TH INFUSION
     Route: 042
     Dates: start: 20120430
  2. REMICADE [Suspect]
     Indication: SAPHO SYNDROME
     Route: 042
     Dates: start: 20120830, end: 20130213
  3. CELECOXIB [Concomitant]
     Dosage: 30-AUG-2013
     Route: 048

REACTIONS (3)
  - Breast cancer [Unknown]
  - Carotid artery aneurysm [Unknown]
  - Off label use [Unknown]
